FAERS Safety Report 12262863 (Version 1)
Quarter: 2016Q2

REPORT INFORMATION
  Report Type: Spontaneous
  Country: CA (occurrence: CA)
  Receive Date: 20160413
  Receipt Date: 20160413
  Transmission Date: 20160815
  Serious: Yes (Other)
  Sender: FDA-Public Use
  Company Number: CA-BAYER-2016-064009

PATIENT
  Age: 39 Year
  Sex: Female
  Weight: 63.39 kg

DRUGS (1)
  1. GADOVIST [Suspect]
     Active Substance: GADOBUTROL
     Indication: LIVER SCAN
     Dosage: 5.0 ML, UNK
     Route: 042

REACTIONS (6)
  - Head discomfort [None]
  - Throat irritation [None]
  - Dizziness [None]
  - Nausea [None]
  - Chest discomfort [None]
  - Throat tightness [None]
